FAERS Safety Report 20954130 (Version 1)
Quarter: 2022Q2

REPORT INFORMATION
  Report Type: Spontaneous
  Country: DE (occurrence: DE)
  Receive Date: 20220614
  Receipt Date: 20220614
  Transmission Date: 20220721
  Serious: Yes (Other)
  Sender: FDA-Public Use
  Company Number: DE-GILEAD-2022-0583967

PATIENT
  Sex: Male

DRUGS (1)
  1. CAYSTON [Suspect]
     Active Substance: AZTREONAM
     Indication: Product used for unknown indication
     Dosage: UNK
     Route: 055
     Dates: start: 2012

REACTIONS (3)
  - Drug ineffective [Not Recovered/Not Resolved]
  - Cystic fibrosis [Not Recovered/Not Resolved]
  - Product physical issue [Not Recovered/Not Resolved]
